FAERS Safety Report 8054918-1 (Version None)
Quarter: 2012Q1

REPORT INFORMATION
  Report Type: 
  Country: None (occurrence: None)
  Receive Date: 20120119
  Receipt Date: 20120109
  Transmission Date: 20120608
  Serious: Yes (Hospitalization)
  Sender: FDA-Public Use
  Company Number: US-BAYER-2011-045989

PATIENT
  Age: 48 Year
  Sex: Female
  Weight: 79 kg

DRUGS (2)
  1. YASMIN [Suspect]
     Indication: CONTRACEPTION
     Dosage: UNK
     Dates: start: 20050712, end: 20051006
  2. LEVOTHYROXINE SODIUM [Concomitant]
     Indication: THYROID DISORDER
     Dosage: 100 ?G, QD (ONCE DAILY)
     Route: 048
     Dates: start: 20040101

REACTIONS (9)
  - DYSPNOEA [None]
  - INJURY [None]
  - PLEURAL EFFUSION [None]
  - PULMONARY EMBOLISM [None]
  - PLEURAL DISORDER [None]
  - EMOTIONAL DISTRESS [None]
  - ANHEDONIA [None]
  - PAIN [None]
  - PLEURISY [None]
